FAERS Safety Report 25757272 (Version 1)
Quarter: 2025Q3

REPORT INFORMATION
  Report Type: Spontaneous
  Country: US (occurrence: US)
  Receive Date: 20250903
  Receipt Date: 20250903
  Transmission Date: 20251021
  Serious: No
  Sender: BAUSCH AND LOMB
  Company Number: US-BAUSCHBL-2025BNL015274

PATIENT

DRUGS (2)
  1. LUMIFY [Suspect]
     Active Substance: BRIMONIDINE TARTRATE
     Indication: Ocular hyperaemia
     Route: 047
  2. LUMIFY [Suspect]
     Active Substance: BRIMONIDINE TARTRATE

REACTIONS (10)
  - Eye injury [Unknown]
  - Eye inflammation [Unknown]
  - Product residue present [Unknown]
  - Allergic reaction to excipient [Unknown]
  - Impaired quality of life [Unknown]
  - Eye discharge [Unknown]
  - Photophobia [Unknown]
  - Eye irritation [Unknown]
  - Ocular hyperaemia [Unknown]
  - Product complaint [Unknown]
